FAERS Safety Report 6329696-4 (Version None)
Quarter: 2009Q3

REPORT INFORMATION
  Report Type: 
  Country: None (occurrence: None)
  Receive Date: 20090826
  Receipt Date: 20090819
  Transmission Date: 20100115
  Serious: Yes (Hospitalization, Other)
  Sender: FDA-Public Use
  Company Number: BR-ABBOTT-09P-020-0583939-00

PATIENT
  Sex: Female
  Weight: 80 kg

DRUGS (5)
  1. HUMIRA [Suspect]
     Indication: RHEUMATOID ARTHRITIS
     Route: 058
     Dates: start: 20090429, end: 20090527
  2. LEFLUNOMIDE [Concomitant]
     Indication: RHEUMATOID ARTHRITIS
     Route: 048
     Dates: start: 20080601
  3. PREDNISONE TAB [Concomitant]
     Indication: RHEUMATOID ARTHRITIS
     Dates: start: 20080301
  4. PREDNISONE TAB [Concomitant]
     Route: 048
  5. SULPIRIDE [Concomitant]
     Indication: MENOPAUSE
     Route: 048
     Dates: start: 20070101, end: 20090601

REACTIONS (4)
  - DIPLOPIA [None]
  - INTRACRANIAL ANEURYSM [None]
  - STRABISMUS [None]
  - URINARY TRACT INFECTION [None]
